FAERS Safety Report 19012391 (Version 1)
Quarter: 2021Q1

REPORT INFORMATION
  Report Type: Report from Study
  Country: US (occurrence: US)
  Receive Date: 20210315
  Receipt Date: 20210315
  Transmission Date: 20210420
  Serious: Yes (Hospitalization)
  Sender: FDA-Public Use
  Company Number: US-EISAI MEDICAL RESEARCH-EC-2021-089431

PATIENT
  Age: 62 Year
  Sex: Female
  Weight: 177 kg

DRUGS (14)
  1. VITAMIN B?6 [Concomitant]
     Active Substance: PYRIDOXINE
  2. KEYTRUDA [Concomitant]
     Active Substance: PEMBROLIZUMAB
  3. MULTIVITAMIN [Concomitant]
     Active Substance: VITAMINS
  4. AMLODIPINE AND ATORVASTATIN [Concomitant]
     Active Substance: AMLODIPINE BESYLATE\ATORVASTATIN CALCIUM
  5. CLARITIN?D 12 HOUR [Concomitant]
     Active Substance: LORATADINE\PSEUDOEPHEDRINE SULFATE
  6. LOSARTAN POTASSIUM. [Concomitant]
     Active Substance: LOSARTAN POTASSIUM
  7. ZINC. [Concomitant]
     Active Substance: ZINC
  8. SERTRALINE HCL [Concomitant]
     Active Substance: SERTRALINE HYDROCHLORIDE
  9. VITAMIN B12 [Concomitant]
     Active Substance: CYANOCOBALAMIN
  10. LENVIMA [Suspect]
     Active Substance: LENVATINIB
     Indication: UTERINE CANCER
     Route: 048
     Dates: start: 20200909, end: 202010
  11. HCTZ [Concomitant]
     Active Substance: HYDROCHLOROTHIAZIDE
  12. VITAMIN C [Concomitant]
     Active Substance: ASCORBIC ACID
  13. LENVIMA [Suspect]
     Active Substance: LENVATINIB
     Indication: HEPATOCELLULAR CARCINOMA
     Route: 048
     Dates: start: 2020, end: 202102
  14. MELATONIN [Concomitant]
     Active Substance: MELATONIN

REACTIONS (5)
  - Cancer pain [Unknown]
  - Colitis [Unknown]
  - Hypotension [Unknown]
  - Diarrhoea [Recovering/Resolving]
  - Dehydration [Unknown]

NARRATIVE: CASE EVENT DATE: 202101
